FAERS Safety Report 22145219 (Version 1)
Quarter: 2023Q1

REPORT INFORMATION
  Report Type: Spontaneous
  Country: US (occurrence: US)
  Receive Date: 20230328
  Receipt Date: 20230328
  Transmission Date: 20230418
  Serious: No
  Sender: FDA-Public Use
  Company Number: US-HORIZON THERAPEUTICS-HZN-2021-001177

PATIENT

DRUGS (1)
  1. RAVICTI [Suspect]
     Active Substance: GLYCEROL PHENYLBUTYRATE
     Indication: Urea cycle disorder
     Route: 048

REACTIONS (3)
  - Dysphagia [Recovered/Resolved]
  - Constipation [Recovered/Resolved]
  - Breath odour [Recovered/Resolved]

NARRATIVE: CASE EVENT DATE: 20200301
